FAERS Safety Report 9063602 (Version 1)
Quarter: 2013Q1

REPORT INFORMATION
  Report Type: Spontaneous
  Country: DE (occurrence: DE)
  Receive Date: 20130213
  Receipt Date: 20130213
  Transmission Date: 20140127
  Serious: Yes (Hospitalization, Other)
  Sender: FDA-Public Use
  Company Number: DE-UCBSA-076608

PATIENT
  Age: 86 Year
  Sex: Female
  Weight: 83 kg

DRUGS (11)
  1. KEPPRA [Suspect]
     Dosage: TOATL AMOUNT: 500MG
     Route: 048
     Dates: start: 20130122, end: 20130122
  2. TIMONIL [Suspect]
     Dosage: COMPLETE DAILY DOSAGE (3 X 400 MG), TOTAL AMOUNT: 1200 MG
     Route: 048
     Dates: start: 20130122, end: 20130122
  3. ARCOXIA [Suspect]
     Dosage: TOTAL AMOUNT: 60 MG
     Route: 048
     Dates: start: 20130122, end: 20130122
  4. NEPRESOL [Suspect]
     Dosage: TOTAL AMOUNT: 12.5 MG
     Route: 048
     Dates: start: 20130122, end: 20130122
  5. BISOPROLOL [Suspect]
     Dosage: TOTAL AMOUNT: 5 MG
     Route: 048
     Dates: start: 20130122, end: 20130122
  6. PARACETAMOL [Suspect]
     Dosage: TOTAL AMOUNT: 500 MG
     Route: 048
     Dates: start: 20130122, end: 20130122
  7. RAMIPRIL [Suspect]
     Dosage: TOTAL AMOUNT: 10 MG
     Route: 048
     Dates: start: 20130122, end: 20130122
  8. L THYROXIN [Suspect]
     Dosage: 75, TOTAL AMOUNT: 0.075 MG
     Route: 048
     Dates: start: 20130122, end: 20130122
  9. ARELIX [Suspect]
     Dosage: TOTAL AMOUNT: 6 MG
     Route: 048
     Dates: start: 20130122, end: 20130122
  10. AMLODIPIN [Suspect]
     Dosage: TOTAL AMOUNT: 5 MG
     Route: 048
     Dates: start: 20130122, end: 20130122
  11. MOXONIDIN [Suspect]
     Dosage: TOTAL AMOUNT: 0.4 MG
     Route: 048
     Dates: start: 20130122, end: 20130122

REACTIONS (3)
  - Accidental exposure to product [Recovered/Resolved]
  - Hypotension [Recovered/Resolved]
  - Vomiting [Recovered/Resolved]
